FAERS Safety Report 6634951-4 (Version None)
Quarter: 2010Q1

REPORT INFORMATION
  Report Type: 
  Country: None (occurrence: None)
  Receive Date: 20100315
  Receipt Date: 20100305
  Transmission Date: 20100710
  Serious: Yes (Death, Disabling, Other)
  Sender: FDA-Public Use
  Company Number: JP-PFIZER INC-2009302717

PATIENT
  Age: 78 Year
  Sex: Female

DRUGS (20)
  1. LIPITOR [Suspect]
     Dosage: 10 MG, UID, 1X/DAY
     Route: 048
     Dates: start: 20090905, end: 20090914
  2. ANCARON [Suspect]
     Indication: VENTRICULAR FIBRILLATION
     Dosage: 1.25 MILLIGRAM(S)/DECILITRE, ONCE
     Route: 042
     Dates: start: 20090905, end: 20090905
  3. ANCARON [Suspect]
     Indication: VENTRICULAR TACHYCARDIA
     Dosage: 1.5 MILLIGRAM(S)/DECILITRE, ONCE
     Route: 042
     Dates: start: 20090906, end: 20090907
  4. ANCARON [Suspect]
     Dosage: 1.5 MILLIGRAM(S)/DECILITRE
     Route: 042
     Dates: start: 20090905, end: 20090906
  5. ANCARON [Suspect]
     Dosage: 200 MG, 2X/DAY
     Route: 050
     Dates: start: 20090907, end: 20090914
  6. PLAVIX [Suspect]
     Indication: STENT PLACEMENT
     Dosage: 75 MG, DAILY
     Dates: start: 20090906, end: 20090914
  7. PLAVIX [Suspect]
     Indication: ACUTE MYOCARDIAL INFARCTION
     Dosage: 300 MG, DAILY
     Dates: start: 20090905, end: 20090905
  8. TAKEPRON [Suspect]
     Dosage: 30 MG, UNKNOWN/D
     Route: 065
     Dates: start: 20090905, end: 20090914
  9. ASPIRIN [Suspect]
     Indication: DRUG USE FOR UNKNOWN INDICATION
     Dosage: 100 MG, UNKNOWN/D
     Route: 065
     Dates: start: 20090905, end: 20090914
  10. MAGNESIUM OXIDE [Suspect]
     Indication: DRUG USE FOR UNKNOWN INDICATION
     Dosage: 990 MG, UNKNOWN/D
     Route: 065
     Dates: start: 20090906, end: 20090914
  11. NORADRENALINE [Concomitant]
     Dosage: 0.6 GAMMA
     Dates: start: 20090905, end: 20090916
  12. DOBUTAMINE HYDROCHLORIDE [Concomitant]
     Dosage: 8 GAMMA
     Dates: start: 20090905, end: 20090913
  13. INOVAN [Concomitant]
     Dosage: 10 GAMMA
     Dates: start: 20090905, end: 20090923
  14. DEXMEDETOMIDINE HYDROCHLORIDE [Concomitant]
     Dosage: UNK
     Dates: start: 20090905, end: 20090915
  15. LANDIOLOL HYDROCHLORIDE [Concomitant]
     Dosage: UNK
     Dates: start: 20090905, end: 20090918
  16. ELASPOL [Concomitant]
     Dosage: UNK
     Dates: start: 20090905, end: 20090918
  17. DIPRIVAN [Concomitant]
     Dosage: UNK
     Dates: start: 20090907, end: 20090913
  18. CARPERITIDE [Concomitant]
     Dosage: UNK
     Dates: start: 20090911, end: 20090922
  19. NITROGLYCERIN [Concomitant]
     Dosage: UNK
     Dates: start: 20090914, end: 20090922
  20. HEPARIN [Concomitant]
     Dosage: UNK
     Dates: start: 20090905, end: 20090920

REACTIONS (9)
  - ACUTE MYOCARDIAL INFARCTION [None]
  - ATRIAL FIBRILLATION [None]
  - CARDIAC FAILURE ACUTE [None]
  - HEPATIC FAILURE [None]
  - JAUNDICE [None]
  - LIVER INJURY [None]
  - MULTI-ORGAN FAILURE [None]
  - VENTRICULAR FIBRILLATION [None]
  - VENTRICULAR TACHYCARDIA [None]
